FAERS Safety Report 11732486 (Version 1)
Quarter: 2015Q4

REPORT INFORMATION
  Report Type: Spontaneous
  Country: CA (occurrence: CA)
  Receive Date: 20151113
  Receipt Date: 20151113
  Transmission Date: 20160304
  Serious: Yes (Other)
  Sender: FDA-Public Use
  Company Number: CA-ROCHE-1658422

PATIENT
  Age: 84 Year
  Sex: Female

DRUGS (8)
  1. VENTOLINE [Concomitant]
     Active Substance: ALBUTEROL
  2. XOLAIR [Suspect]
     Active Substance: OMALIZUMAB
     Indication: ASTHMA
     Route: 058
     Dates: start: 20120905
  3. OMNARIS [Concomitant]
     Active Substance: CICLESONIDE
  4. ALVESCO [Concomitant]
     Active Substance: CICLESONIDE
  5. SYMBICORT [Concomitant]
     Active Substance: BUDESONIDE\FORMOTEROL FUMARATE DIHYDRATE
  6. ADVAIR HFA [Concomitant]
     Active Substance: FLUTICASONE PROPIONATE\SALMETEROL XINAFOATE
  7. SPIRIVA [Concomitant]
     Active Substance: TIOTROPIUM BROMIDE MONOHYDRATE
  8. XOLAIR [Suspect]
     Active Substance: OMALIZUMAB
     Route: 058
     Dates: start: 20150610

REACTIONS (7)
  - Carbon monoxide diffusing capacity decreased [Unknown]
  - Asthma [Unknown]
  - Headache [Unknown]
  - Expiratory reserve volume decreased [Recovering/Resolving]
  - Obstructive airways disorder [Unknown]
  - Reversible airways obstruction [Unknown]
  - Arthritis [Unknown]

NARRATIVE: CASE EVENT DATE: 20150610
